FAERS Safety Report 18638998 (Version 2)
Quarter: 2021Q2

REPORT INFORMATION
  Report Type: Report from Study
  Country: None (occurrence: US)
  Receive Date: 20201218
  Receipt Date: 20210416
  Transmission Date: 20210717
  Serious: No
  Sender: FDA-Public Use
  Company Number: US-ABBVIE-20P-163-3687459-00

PATIENT
  Age: 37 Year
  Sex: Female
  Weight: 98 kg

DRUGS (6)
  1. AMLODIPINE [Concomitant]
     Active Substance: AMLODIPINE BESYLATE
     Indication: HYPERTENSION
     Route: 048
     Dates: start: 2017
  2. ELAGOLIX [Suspect]
     Active Substance: ELAGOLIX
     Indication: UTERINE LEIOMYOMA
     Dosage: PM DOSE
     Route: 048
     Dates: start: 20190927, end: 20200828
  3. VITAMIN D [Concomitant]
     Active Substance: VITAMIN D NOS
     Indication: VITAMIN D DEFICIENCY
     Route: 048
     Dates: start: 20190730
  4. ELAGOLIX/ESTRADIOL/NORETHINDRONE ACETATE [Suspect]
     Active Substance: ELAGOLIX SODIUM\ESTRADIOL\NORETHINDRONE
     Indication: UTERINE LEIOMYOMA
     Dosage: ELAGOLIX 300MG/ESTRADIOL/NORETHINDRONE 1.0MG /0.5MG
     Route: 048
     Dates: start: 20200828
  5. ELAGOLIX [Suspect]
     Active Substance: ELAGOLIX
     Indication: UTERINE LEIOMYOMA
     Dosage: PM DOSE
     Route: 048
     Dates: start: 20200828
  6. ELAGOLIX/ESTRADIOL/NORETHINDRONE ACETATE [Suspect]
     Active Substance: ELAGOLIX SODIUM\ESTRADIOL\NORETHINDRONE
     Indication: UTERINE LEIOMYOMA
     Dosage: ELAGOLIX 300MG/ESTRADIOL/NORETHINDRONE 1.0MG /0.5MG
     Route: 048
     Dates: start: 20190927, end: 20200828

REACTIONS (1)
  - Bone density decreased [Not Recovered/Not Resolved]

NARRATIVE: CASE EVENT DATE: 20200828
